FAERS Safety Report 5220652-6 (Version None)
Quarter: 2007Q1

REPORT INFORMATION
  Report Type: 
  Country: None (occurrence: None)
  Receive Date: 20070126
  Receipt Date: 20070112
  Transmission Date: 20070707
  Serious: Yes (Other)
  Sender: FDA-Public Use
  Company Number: US-JNJFOC-20070103404

PATIENT
  Age: 42 Year
  Sex: Female

DRUGS (17)
  1. FENTANYL [Suspect]
     Indication: DRUG USE FOR UNKNOWN INDICATION
     Route: 065
  2. OXYCONTIN [Interacting]
     Indication: DRUG USE FOR UNKNOWN INDICATION
     Route: 065
  3. METHOTREXATE [Concomitant]
     Route: 065
  4. CARISOPRODOL [Concomitant]
     Route: 065
  5. BACLOFEN [Concomitant]
     Route: 065
  6. TRILEPTAL [Concomitant]
     Route: 065
  7. DITROPAN [Concomitant]
     Route: 065
  8. FOLIC ACID [Concomitant]
     Route: 065
  9. SSRI [Concomitant]
     Route: 065
  10. PROTON PUMP INHIBITOR [Concomitant]
     Route: 065
  11. BETA BLOCKERS [Concomitant]
     Route: 065
  12. HYDROCODONE BITARTRATE [Concomitant]
     Route: 065
  13. RESPIRIDOL [Concomitant]
     Route: 065
  14. TRAZODONE HCL [Concomitant]
     Route: 065
  15. BENZO [Concomitant]
     Route: 065
  16. IBUPROFEN [Concomitant]
     Route: 065
  17. LEUCOTRIENE ANTAGONIST [Concomitant]
     Route: 065

REACTIONS (5)
  - DRUG INTERACTION [None]
  - DYSARTHRIA [None]
  - NAUSEA [None]
  - OVERDOSE [None]
  - VISUAL DISTURBANCE [None]
